FAERS Safety Report 16025886 (Version 6)
Quarter: 2025Q3

REPORT INFORMATION
  Report Type: Spontaneous
  Country: EU (occurrence: EU)
  Receive Date: 20190302
  Receipt Date: 20250808
  Transmission Date: 20251021
  Serious: Yes (Hospitalization)
  Sender: AUROBINDO
  Company Number: EU-AUROBINDO-AUR-APL-2019-011228

PATIENT
  Age: 40 Year
  Sex: Female

DRUGS (9)
  1. BUPRENORPHINE [Suspect]
     Active Substance: BUPRENORPHINE
     Indication: Poisoning
     Route: 065
  2. MIRTAZAPINE [Suspect]
     Active Substance: MIRTAZAPINE
     Indication: Depression
     Route: 065
  3. MIRTAZAPINE [Suspect]
     Active Substance: MIRTAZAPINE
     Indication: Toxicity to various agents
  4. QUETIAPINE [Suspect]
     Active Substance: QUETIAPINE
     Indication: Depression
     Route: 065
  5. QUETIAPINE [Suspect]
     Active Substance: QUETIAPINE
     Indication: Poisoning
  6. QUETIAPINE [Suspect]
     Active Substance: QUETIAPINE
     Indication: Toxicity to various agents
  7. CLONAZEPAM [Suspect]
     Active Substance: CLONAZEPAM
     Indication: Epilepsy
     Route: 065
  8. CLONAZEPAM [Suspect]
     Active Substance: CLONAZEPAM
     Indication: Depression
  9. CLONAZEPAM [Suspect]
     Active Substance: CLONAZEPAM
     Indication: Toxicity to various agents

REACTIONS (3)
  - Radial nerve palsy [Unknown]
  - Toxicity to various agents [Unknown]
  - Off label use [Unknown]
